FAERS Safety Report 10897804 (Version 1)
Quarter: 2015Q1

REPORT INFORMATION
  Report Type: Spontaneous
  Country: US (occurrence: None)
  Receive Date: 20150302
  Receipt Date: 20150302
  Transmission Date: 20150721
  Serious: No
  Sender: FDA-Public Use
  Company Number: None

PATIENT

DRUGS (1)
  1. MIDODRINE [Suspect]
     Active Substance: MIDODRINE
     Indication: ORTHOSTATIC HYPOTENSION
     Dosage: 1 PILL, THREE TIMES DAILY

REACTIONS (3)
  - Cerebral hypoperfusion [None]
  - Poor quality sleep [None]
  - Mental disorder [None]

NARRATIVE: CASE EVENT DATE: 20150211
